FAERS Safety Report 11423227 (Version 1)
Quarter: 2015Q3

REPORT INFORMATION
  Report Type: Spontaneous
  Country: US (occurrence: None)
  Receive Date: 20150826
  Receipt Date: 20150826
  Transmission Date: 20151125
  Serious: No
  Sender: FDA-Public Use
  Company Number: None

PATIENT
  Age: 53 Year
  Sex: Male
  Weight: 88.45 kg

DRUGS (8)
  1. METOPROLOL SUCCINATE ER [Concomitant]
     Active Substance: METOPROLOL SUCCINATE
  2. LEVEMIR [Suspect]
     Active Substance: INSULIN DETEMIR
     Indication: TYPE 1 DIABETES MELLITUS
     Dosage: INJECTION ARM,LEG, ?STOMACH01/2016
     Dates: start: 20150717, end: 20150824
  3. ALPRAZOLAM. [Concomitant]
     Active Substance: ALPRAZOLAM
  4. POLYETHYLENE GLYCOL [Concomitant]
     Active Substance: POLYETHYLENE GLYCOLS
  5. LOW DOSE ASPIRIN [Concomitant]
     Active Substance: ASPIRIN
  6. ESOMEPRAZOLE (ZANTAC) [Concomitant]
  7. SERTRALINE [Concomitant]
     Active Substance: SERTRALINE HYDROCHLORIDE
  8. L-THROXINE [Concomitant]

REACTIONS (8)
  - Headache [None]
  - Myalgia [None]
  - Depression [None]
  - Injection site erythema [None]
  - Injection site joint warmth [None]
  - Injection site pruritus [None]
  - Injection site warmth [None]
  - Product substitution issue [None]

NARRATIVE: CASE EVENT DATE: 20150825
